FAERS Safety Report 6742228-1 (Version None)
Quarter: 2010Q2

REPORT INFORMATION
  Report Type: 
  Country: None (occurrence: None)
  Receive Date: 20100526
  Receipt Date: 20100521
  Transmission Date: 20101027
  Serious: Yes (Hospitalization, Disabling, Other)
  Sender: FDA-Public Use
  Company Number: US-JNJCH-2010012534

PATIENT

DRUGS (1)
  1. ASPIRIN [Suspect]
     Indication: DRUG USE FOR UNKNOWN INDICATION
     Dosage: TEXT:UNSPECIFIED
     Route: 065

REACTIONS (2)
  - NERVOUS SYSTEM DISORDER [None]
  - THERAPEUTIC AGENT TOXICITY [None]
